FAERS Safety Report 18258921 (Version 2)
Quarter: 2020Q3

REPORT INFORMATION
  Report Type: Report from Study
  Country: US (occurrence: US)
  Receive Date: 20200911
  Receipt Date: 20200925
  Transmission Date: 20201103
  Serious: Yes (Hospitalization, Other)
  Sender: FDA-Public Use
  Company Number: US-JNJFOC-A-NJ2019-199343

PATIENT
  Age: 61 Year
  Sex: Female
  Weight: 46.31 kg

DRUGS (5)
  1. VELETRI [Suspect]
     Active Substance: EPOPROSTENOL
     Indication: PULMONARY ARTERIAL HYPERTENSION
     Dosage: 72 NG/KG, PER MIN
     Route: 042
  2. ADEMPAS [Suspect]
     Active Substance: RIOCIGUAT
     Indication: PRODUCT USED FOR UNKNOWN INDICATION
     Route: 065
  3. NIFEDIPINE. [Concomitant]
     Active Substance: NIFEDIPINE
  4. ADEMPAS [Suspect]
     Active Substance: RIOCIGUAT
     Route: 065
  5. OPSUMIT [Suspect]
     Active Substance: MACITENTAN
     Indication: PULMONARY ARTERIAL HYPERTENSION
     Route: 048

REACTIONS (15)
  - Catheter management [Unknown]
  - Ascites [Unknown]
  - Dyspnoea [Unknown]
  - Neck pain [Unknown]
  - Diarrhoea [Not Recovered/Not Resolved]
  - Dyspnoea exertional [Unknown]
  - Dyspnoea at rest [Unknown]
  - Fatigue [Unknown]
  - Peripheral swelling [Unknown]
  - Arthralgia [Unknown]
  - Spinal pain [Unknown]
  - Pain in extremity [Unknown]
  - Malaise [Unknown]
  - Nerve compression [Unknown]
  - Dizziness postural [Unknown]
